FAERS Safety Report 11168546 (Version 1)
Quarter: 2015Q2

REPORT INFORMATION
  Report Type: Spontaneous
  Country: JP (occurrence: JP)
  Receive Date: 20150605
  Receipt Date: 20150605
  Transmission Date: 20150821
  Serious: Yes (Hospitalization, Other)
  Sender: FDA-Public Use
  Company Number: JP-AMGEN-JPNSP2015054771

PATIENT
  Age: 82 Year
  Sex: Female
  Weight: 27 kg

DRUGS (2)
  1. INLYTA [Suspect]
     Active Substance: AXITINIB
     Indication: METASTATIC RENAL CELL CARCINOMA
     Dosage: 5 MG, BID
     Route: 048
     Dates: start: 20120924, end: 20120927
  2. RANMARK [Suspect]
     Active Substance: DENOSUMAB
     Indication: BONE CANCER
     Dosage: 120 MG, UNK
     Route: 058
     Dates: start: 20120924

REACTIONS (17)
  - Insomnia [Recovered/Resolved]
  - Dysphagia [Unknown]
  - Malaise [Unknown]
  - Stomatitis [Unknown]
  - Cancer pain [Recovered/Resolved]
  - Gastritis [Recovered/Resolved]
  - Hypertension [Recovered/Resolved]
  - Dysphonia [Recovered/Resolved]
  - Palmar-plantar erythrodysaesthesia syndrome [Recovered/Resolved]
  - Hypocalcaemia [Recovered/Resolved]
  - Diarrhoea [Unknown]
  - Dysgeusia [Recovered/Resolved]
  - Nausea [Unknown]
  - Hypothyroidism [Recovered/Resolved]
  - Eczema asteatotic [Recovered/Resolved]
  - Decreased appetite [Recovered/Resolved]
  - Constipation [Recovered/Resolved]

NARRATIVE: CASE EVENT DATE: 20120924
